FAERS Safety Report 8046075-2 (Version None)
Quarter: 2012Q1

REPORT INFORMATION
  Report Type: 
  Country: None (occurrence: None)
  Receive Date: 20120112
  Receipt Date: 20120112
  Transmission Date: 20120608
  Serious: Yes (Hospitalization)
  Sender: FDA-Public Use
  Company Number: None

PATIENT
  Sex: Male

DRUGS (2)
  1. PEGASYS [Suspect]
     Dosage: 180MCG QW SQ
     Route: 058
     Dates: start: 20111019, end: 20111228
  2. RIBAVIRIN [Suspect]
     Dosage: 400MG BID 09
     Route: 048
     Dates: start: 20111019, end: 20111226

REACTIONS (7)
  - PANCYTOPENIA [None]
  - DIARRHOEA [None]
  - CONDITION AGGRAVATED [None]
  - BACTERIAL INFECTION [None]
  - NAUSEA [None]
  - FATIGUE [None]
  - VOMITING [None]
